FAERS Safety Report 6765430-1 (Version None)
Quarter: 2010Q2

REPORT INFORMATION
  Report Type: 
  Country: None (occurrence: None)
  Receive Date: 20100609
  Receipt Date: 20100525
  Transmission Date: 20101027
  Serious: Yes (Hospitalization)
  Sender: FDA-Public Use
  Company Number: KV201000126

PATIENT
  Age: 50 Year
  Sex: Female
  Weight: 80.7 kg

DRUGS (22)
  1. CONISON (IRON SUPPLEMENT) CAPSULE [Suspect]
     Indication: IRON DEFICIENCY ANAEMIA
     Dosage: 1 CAPSULE, BID, ORAL
     Route: 048
     Dates: start: 20080506, end: 20090423
  2. CEPHALEXIN [Concomitant]
  3. CHOLESTYRAMINE (COLESTYRAMINE) [Concomitant]
  4. CEFUROXIME [Concomitant]
  5. VICODIN [Concomitant]
  6. VALIUM [Concomitant]
  7. WELLBUTRIN [Concomitant]
  8. LEXAPRO [Concomitant]
  9. SONATA [Concomitant]
  10. AMBIEN CR [Concomitant]
  11. ESTRADIOL [Concomitant]
  12. CYMBALTA [Concomitant]
  13. FOLIC ACID [Concomitant]
  14. SYNTHROID [Concomitant]
  15. MULTIVITAMINS (ASCORBIC ACID, ERGOCALCIFEROL, FOLIC ACID, NICOTINAMIDE [Concomitant]
  16. OMEGA-3 FATTY ACIDS [Concomitant]
  17. MECLIZINE [Concomitant]
  18. FLEXERIL [Concomitant]
  19. DIGESTIVES, INCL ENZYMES [Concomitant]
  20. SEROTONIN ANTAGONISTS [Concomitant]
  21. LITHIUM CARBONATE [Concomitant]
  22. DICLOFENAC SODIUM [Concomitant]

REACTIONS (37)
  - ABDOMINAL PAIN [None]
  - ARTHRALGIA [None]
  - BLOOD PRESSURE FLUCTUATION [None]
  - BONE PAIN [None]
  - CHEST PAIN [None]
  - CONFUSIONAL STATE [None]
  - CONSTIPATION [None]
  - CONTUSION [None]
  - DEPRESSION [None]
  - DIARRHOEA [None]
  - DISORIENTATION [None]
  - DIZZINESS [None]
  - DRY SKIN [None]
  - DYSPAREUNIA [None]
  - DYSPHAGIA [None]
  - FACIAL PAIN [None]
  - FATIGUE [None]
  - GAIT DISTURBANCE [None]
  - HYPOAESTHESIA [None]
  - JOINT SWELLING [None]
  - MENTAL DISORDER [None]
  - MUSCULAR WEAKNESS [None]
  - MUSCULOSKELETAL PAIN [None]
  - NAUSEA [None]
  - NIGHT SWEATS [None]
  - PAIN [None]
  - PAIN IN EXTREMITY [None]
  - PNEUMONIA [None]
  - RASH PRURITIC [None]
  - SINUS CONGESTION [None]
  - STRESS [None]
  - SUICIDAL IDEATION [None]
  - TREMOR [None]
  - VAGINAL DISCHARGE [None]
  - VISION BLURRED [None]
  - WEIGHT INCREASED [None]
  - WRIST FRACTURE [None]
